FAERS Safety Report 8078942-8 (Version None)
Quarter: 2012Q1

REPORT INFORMATION
  Report Type: 
  Country: None (occurrence: None)
  Receive Date: 20120124
  Receipt Date: 20120109
  Transmission Date: 20120608
  Serious: Yes (Death)
  Sender: FDA-Public Use
  Company Number: JPI-P-000210

PATIENT
  Age: 44 Year
  Sex: Female

DRUGS (10)
  1. BENZODIAZEPINES [Suspect]
     Indication: PRODUCT USED FOR UNKNOWN INDICATION
     Dates: end: 20061122
  2. PREGABALIN [Concomitant]
  3. DIAZEPAM [Concomitant]
  4. TIZANIDINE HCL [Concomitant]
  5. ANTIEPILEPTIC [Suspect]
     Indication: PRODUCT USED FOR UNKNOWN INDICATION
     Dates: end: 20061122
  6. XYREM [Suspect]
     Indication: CATAPLEXY
     Dosage: (7 GM), ORAL
     Route: 048
     Dates: start: 20051001, end: 20061122
  7. SEDATIVE-HYPNOTIC [Suspect]
     Indication: PRODUCT USED FOR UNKNOWN INDICATION
     Dates: end: 20061122
  8. ANTIPARKINSONISM DRUGS [Suspect]
     Indication: PRODUCT USED FOR UNKNOWN INDICATION
     Dates: end: 20061122
  9. TEGASEROD MALEATE [Concomitant]
  10. RAMELTEON [Concomitant]

REACTIONS (5)
  - ABNORMAL BEHAVIOUR [None]
  - DROWNING [None]
  - POISONING [None]
  - MENTAL DISORDER [None]
  - ALCOHOL USE [None]
